FAERS Safety Report 9604786 (Version 2)
Quarter: 2013Q4

REPORT INFORMATION
  Report Type: Spontaneous
  Country: BR (occurrence: BR)
  Receive Date: 20131008
  Receipt Date: 20131203
  Transmission Date: 20140711
  Serious: Yes (Other)
  Sender: FDA-Public Use
  Company Number: BR-ASTRAZENECA-2013SE72885

PATIENT
  Age: 61 Year
  Sex: Female

DRUGS (5)
  1. ATACAND [Suspect]
     Indication: HYPERTENSION
     Route: 048
     Dates: start: 2005, end: 201310
  2. SYNTHROID [Concomitant]
     Dates: start: 2005
  3. DIAMICRON [Concomitant]
     Indication: DIABETES MELLITUS
     Dates: start: 2007
  4. VYTORIN [Concomitant]
     Indication: BLOOD CHOLESTEROL INCREASED
     Dates: start: 2008
  5. INSULIN [Concomitant]
     Indication: DIABETES MELLITUS
     Dates: start: 2011

REACTIONS (5)
  - Diabetes mellitus [Recovered/Resolved]
  - Hyperglycaemia [Recovered/Resolved]
  - Blood pressure increased [Recovered/Resolved]
  - Blood cholesterol increased [Unknown]
  - Drug ineffective [Recovered/Resolved]
